FAERS Safety Report 7500336-1 (Version None)
Quarter: 2011Q2

REPORT INFORMATION
  Report Type: 
  Country: None (occurrence: None)
  Receive Date: 20110524
  Receipt Date: 20100308
  Transmission Date: 20111010
  Serious: No
  Sender: FDA-Public Use
  Company Number: US-BAYER-201016676NA

PATIENT
  Sex: Female

DRUGS (1)
  1. MIRENA [Suspect]
     Indication: CONTRACEPTION
     Dosage: 20 ?G/D, CONT
     Route: 015
     Dates: start: 20080801, end: 20100303

REACTIONS (7)
  - GENITAL HAEMORRHAGE [None]
  - POST PROCEDURAL HAEMORRHAGE [None]
  - ABDOMINAL PAIN LOWER [None]
  - PROCEDURAL PAIN [None]
  - MENSTRUATION IRREGULAR [None]
  - DYSPAREUNIA [None]
  - ABDOMINAL PAIN [None]
